FAERS Safety Report 17340215 (Version 1)
Quarter: 2020Q1

REPORT INFORMATION
  Report Type: Spontaneous
  Country: BR (occurrence: BR)
  Receive Date: 20200129
  Receipt Date: 20200129
  Transmission Date: 20200409
  Serious: Yes (Other)
  Sender: FDA-Public Use
  Company Number: BR-SA-2020SA018536

PATIENT
  Age: 38 Year
  Sex: Female
  Weight: 44.5 kg

DRUGS (2)
  1. RANITIDINE HYDROCHLORIDE. [Suspect]
     Active Substance: RANITIDINE HYDROCHLORIDE
     Indication: GASTROOESOPHAGEAL REFLUX DISEASE
     Dosage: THREE TO FOUR MONTHS, 1 DF, QD
     Route: 048
  2. FOLIC ACID. [Concomitant]
     Active Substance: FOLIC ACID
     Indication: PREGNANCY
     Dosage: 5 MONTHS, 1 DF, QD
     Route: 048

REACTIONS (3)
  - Premature separation of placenta [Unknown]
  - Exposure during pregnancy [Unknown]
  - Intentional product use issue [Unknown]
